FAERS Safety Report 5537508-1 (Version None)
Quarter: 2007Q4

REPORT INFORMATION
  Report Type: 
  Country: None (occurrence: None)
  Receive Date: 20071207
  Receipt Date: 20071204
  Transmission Date: 20080405
  Serious: Yes (Hospitalization)
  Sender: FDA-Public Use
  Company Number: FR-MERCK-0712FRA00007

PATIENT
  Age: 74 Year
  Sex: Female

DRUGS (5)
  1. COZAAR [Suspect]
     Indication: HYPERTENSION
     Route: 048
     Dates: start: 20070810, end: 20070810
  2. PROPRANOLOL HYDROCHLORIDE [Concomitant]
     Indication: ISCHAEMIC CARDIOMYOPATHY
     Route: 048
  3. FUROSEMIDE [Concomitant]
     Indication: HYPERTENSION
     Route: 048
  4. INSULIN GLARGINE [Concomitant]
     Indication: TYPE 1 DIABETES MELLITUS
     Route: 058
  5. HYDROXYZINE HYDROCHLORIDE [Concomitant]
     Route: 048

REACTIONS (4)
  - HYPOTENSION [None]
  - MALAISE [None]
  - VERTIGO [None]
  - VISION BLURRED [None]
